FAERS Safety Report 11416352 (Version 1)
Quarter: 2015Q3

REPORT INFORMATION
  Report Type: Spontaneous
  Country: FR (occurrence: FR)
  Receive Date: 20150825
  Receipt Date: 20150825
  Transmission Date: 20151125
  Serious: Yes (Life-Threatening)
  Sender: FDA-Public Use
  Company Number: FR-GE HEALTHCARE MEDICAL DIAGNOSTICS-OMPQ-PR-1508S-1451

PATIENT
  Age: 61 Year
  Sex: Female

DRUGS (9)
  1. OMNIPAQUE [Suspect]
     Active Substance: IOHEXOL
     Indication: DIAGNOSTIC PROCEDURE
  2. APROVEL [Suspect]
     Active Substance: IRBESARTAN
     Route: 048
     Dates: end: 20150313
  3. LANTUS [Concomitant]
     Active Substance: INSULIN GLARGINE
  4. KARDEGIC [Concomitant]
     Active Substance: ASPIRIN LYSINE
  5. TAHOR 40 [Concomitant]
  6. EZETROL [Concomitant]
     Active Substance: EZETIMIBE
  7. OMNIPAQUE [Suspect]
     Active Substance: IOHEXOL
     Indication: PRODUCT USED FOR UNKNOWN INDICATION
     Route: 042
     Dates: start: 20150310, end: 20150310
  8. METFORMINE 1000 [Concomitant]
  9. APIDRA [Concomitant]
     Active Substance: INSULIN GLULISINE

REACTIONS (1)
  - Acute kidney injury [Recovered/Resolved with Sequelae]

NARRATIVE: CASE EVENT DATE: 20150313
